FAERS Safety Report 18045420 (Version 3)
Quarter: 2020Q3

REPORT INFORMATION
  Report Type: Spontaneous
  Country: DE (occurrence: DE)
  Receive Date: 20200720
  Receipt Date: 20200928
  Transmission Date: 20201103
  Serious: Yes (Hospitalization, Other)
  Sender: FDA-Public Use
  Company Number: DE-AMGEN-DEUSP2020113183

PATIENT
  Sex: Male
  Weight: 1.97 kg

DRUGS (10)
  1. CYTARABINE. [Suspect]
     Active Substance: CYTARABINE
     Indication: EXPOSURE DURING PREGNANCY
     Dosage: 150 MILLIGRAM/SQ. METER, BID (OVER 1 HOUR ON DAY 2 TO 6)
     Route: 064
  2. DEXAMETHASONE. [Suspect]
     Active Substance: DEXAMETHASONE
     Indication: EXPOSURE DURING PREGNANCY
     Dosage: 4 MILLIGRAM, CYCLICAL (ON DAY 2 AND 6)
     Route: 064
  3. RITUXIMAB. [Suspect]
     Active Substance: RITUXIMAB
     Indication: EXPOSURE DURING PREGNANCY
     Dosage: 375 MILLIGRAM/SQ. METER (OVER 3 HOURS ON DAY 1)
     Route: 064
  4. MESNA. [Suspect]
     Active Substance: MESNA
     Indication: EXPOSURE DURING PREGNANCY
     Dosage: 200 MILLIGRAM/SQ. METER, TID (0, 4, AND 8 HOURS AFTER CPA DAY 2)
     Route: 064
  5. DOXORUBICIN [Suspect]
     Active Substance: DOXORUBICIN
     Indication: EXPOSURE DURING PREGNANCY
     Dosage: 50 MILLIGRAM/SQ. METER, CYCLICAL (OVER 30 ON DAY 2)
     Route: 064
  6. PREDNISOLONE. [Suspect]
     Active Substance: PREDNISOLONE
     Indication: EXPOSURE DURING PREGNANCY
     Dosage: 100 MILLIGRAM, CYCLICAL (ON DAY 2 TO 4)
     Route: 064
  7. VINCRISTINE [Suspect]
     Active Substance: VINCRISTINE
     Indication: EXPOSURE DURING PREGNANCY
     Dosage: 2 MILLIGRAM/SQ. METER, CYCLICAL (ON DAY 2)
     Route: 064
  8. ETOPOSIDE. [Suspect]
     Active Substance: ETOPOSIDE
     Indication: EXPOSURE DURING PREGNANCY
     Dosage: 100 MILLIGRAM/SQ. METER, CYCLICAL (ONDAY 2 TO 4)
     Route: 064
  9. CYCLOPHOSPHAMIDE. [Suspect]
     Active Substance: CYCLOPHOSPHAMIDE
     Indication: EXPOSURE DURING PREGNANCY
     Dosage: 750 MILLIGRAM/SQ. METER (OVER AN HOUR ON DAY 2)
     Route: 064
  10. FILGRASTIM [Suspect]
     Active Substance: FILGRASTIM
     Indication: EXPOSURE DURING PREGNANCY
     Dosage: 10 MICROGRAM/KILOGRAM, QD (ON DAY 6 ? 11)
     Route: 064

REACTIONS (9)
  - Small for dates baby [Unknown]
  - Vaccination failure [Unknown]
  - Foetal growth restriction [Unknown]
  - Bacterial infection [Recovered/Resolved]
  - Premature baby [Unknown]
  - Low birth weight baby [Recovered/Resolved]
  - B-lymphocyte count decreased [Not Recovered/Not Resolved]
  - Hypogammaglobulinaemia [Not Recovered/Not Resolved]
  - Foetal exposure during pregnancy [Unknown]
